FAERS Safety Report 12095253 (Version 6)
Quarter: 2016Q2

REPORT INFORMATION
  Report Type: Report from Study
  Country: FR (occurrence: FR)
  Receive Date: 20160219
  Receipt Date: 20160614
  Transmission Date: 20160815
  Serious: Yes (Hospitalization)
  Sender: FDA-Public Use
  Company Number: PHHO2016FR000986

PATIENT
  Age: 85 Year
  Sex: Female
  Weight: 73 kg

DRUGS (2)
  1. TRAMETINIB [Suspect]
     Active Substance: TRAMETINIB
     Indication: NON-SMALL CELL LUNG CANCER
     Route: 048
  2. DABRAFENIB [Suspect]
     Active Substance: DABRAFENIB
     Indication: NON-SMALL CELL LUNG CANCER
     Dosage: UNK
     Route: 048
     Dates: start: 20130507

REACTIONS (4)
  - Renal failure [Not Recovered/Not Resolved]
  - Ejection fraction decreased [Recovering/Resolving]
  - Diarrhoea [Recovered/Resolved]
  - Pulmonary embolism [Not Recovered/Not Resolved]

NARRATIVE: CASE EVENT DATE: 20160108
